FAERS Safety Report 14980163 (Version 2)
Quarter: 2018Q2

REPORT INFORMATION
  Report Type: Spontaneous
  Country: RU (occurrence: RU)
  Receive Date: 20180606
  Receipt Date: 20180622
  Transmission Date: 20180711
  Serious: Yes (Hospitalization, Other)
  Sender: FDA-Public Use
  Company Number: RU-ASTRAZENECA-2018SE14669

PATIENT
  Age: 58 Year
  Sex: Male
  Weight: 100 kg

DRUGS (9)
  1. OMEZ [Concomitant]
     Active Substance: OMEPRAZOLE
     Dates: start: 20170829
  2. PREDUCTAL A [Concomitant]
     Dates: start: 20170829
  3. BRILINTA [Suspect]
     Active Substance: TICAGRELOR
     Indication: MYOCARDIAL INFARCTION
     Route: 048
     Dates: start: 20170829
  4. TROMBO ASS [Concomitant]
     Active Substance: ASPIRIN
     Dates: start: 20170829
  5. VEROSPIRON [Concomitant]
     Active Substance: SPIRONOLACTONE
     Dates: start: 20170829
  6. GLIBOMET [Concomitant]
     Active Substance: GLYBURIDE\METFORMIN HYDROCHLORIDE
  7. METOPROLOL. [Concomitant]
     Active Substance: METOPROLOL
  8. ACECARDOL [Concomitant]
     Active Substance: ASPIRIN
  9. SIMVASTATIN. [Concomitant]
     Active Substance: SIMVASTATIN
     Dates: start: 20170829

REACTIONS (4)
  - Type 2 diabetes mellitus [Not Recovered/Not Resolved]
  - Furuncle [Recovered/Resolved]
  - Chronic gastritis [Not Recovered/Not Resolved]
  - Vascular stent stenosis [Not Recovered/Not Resolved]

NARRATIVE: CASE EVENT DATE: 201801
